FAERS Safety Report 4411269-1 (Version None)
Quarter: 2004Q3

REPORT INFORMATION
  Report Type: 
  Country: None (occurrence: None)
  Receive Date: 20040727
  Receipt Date: 20040714
  Transmission Date: 20050211
  Serious: Yes (Hospitalization)
  Sender: FDA-Public Use
  Company Number: 2004047495

PATIENT
  Age: 17 Year
  Sex: Female

DRUGS (5)
  1. ATARAX [Suspect]
     Indication: PREMEDICATION
     Dosage: 50 MG
  2. AMOXICILLIN TRIHYDRATE [Suspect]
     Indication: PROPHYLAXIS
  3. CIMETIDINE [Suspect]
     Indication: ILL-DEFINED DISORDER
     Dosage: 200 MG, ORAL
     Route: 048
  4. MIDAZOLAM HCL [Suspect]
  5. REMIFENTANIL HYDROCHLORIDE (REMIFENTANIL HYDROCHLORIDE) [Suspect]
     Indication: ILL-DEFINED DISORDER

REACTIONS (5)
  - ANAESTHETIC COMPLICATION [None]
  - ANAPHYLACTIC REACTION [None]
  - BRONCHOSPASM [None]
  - PNEUMOTHORAX [None]
  - SKIN TEST POSITIVE [None]
